FAERS Safety Report 26060526 (Version 2)
Quarter: 2025Q4

REPORT INFORMATION
  Report Type: Spontaneous
  Country: US (occurrence: US)
  Receive Date: 20251118
  Receipt Date: 20251203
  Transmission Date: 20260118
  Serious: No
  Sender: SANOFI AVENTIS
  Company Number: US-SA-2025SA343547

PATIENT
  Sex: Male
  Weight: 11.82 kg

DRUGS (3)
  1. DUPIXENT [Suspect]
     Active Substance: DUPILUMAB
     Indication: Dermatitis atopic
     Dosage: 200 MG, Q4W
     Route: 058
  2. POLYSPORIN [Concomitant]
     Active Substance: BACITRACIN ZINC\POLYMYXIN B SULFATE
  3. EUCRISA [Concomitant]
     Active Substance: CRISABOROLE

REACTIONS (3)
  - Dermatitis atopic [Unknown]
  - Needle issue [Unknown]
  - Device use issue [Unknown]
